FAERS Safety Report 23821547 (Version 2)
Quarter: 2024Q2

REPORT INFORMATION
  Report Type: Spontaneous
  Country: US (occurrence: US)
  Receive Date: 20240506
  Receipt Date: 20240603
  Transmission Date: 20240716
  Serious: No
  Sender: FDA-Public Use
  Company Number: US-TEVA-VS-3185852

PATIENT
  Sex: Male

DRUGS (16)
  1. PENICILLIN [Suspect]
     Active Substance: PENICILLIN
     Indication: Product used for unknown indication
     Route: 065
  2. OMEPRAZOLE [Concomitant]
     Active Substance: DONEPEZIL HYDROCHLORIDE\OMEPRAZOLE\OMEPRAZOLE MAGNESIUM
  3. XARELTO [Concomitant]
     Active Substance: RIVAROXABAN
  4. VENTOLIN HFA [Concomitant]
     Active Substance: ALBUTEROL SULFATE
  5. MARINOL [Concomitant]
     Active Substance: DRONABINOL
  6. VITAMINS [Concomitant]
     Active Substance: VITAMINS
  7. AIRBORNE [Concomitant]
     Active Substance: HERBALS\MINERALS\VITAMINS
  8. LYRICA [Concomitant]
     Active Substance: PREGABALIN
  9. TROKENDI XR [Concomitant]
     Active Substance: TOPIRAMATE
  10. ARIPIPRAZOLE [Concomitant]
     Active Substance: ARIPIPRAZOLE
  11. TRAZODONE [Concomitant]
     Active Substance: TRAZODONE HYDROCHLORIDE
  12. PRIMIDONE [Concomitant]
     Active Substance: PRIMIDONE
  13. VITAMIN D3 [Concomitant]
     Active Substance: CHOLECALCIFEROL
  14. AMANTADINE [Concomitant]
     Active Substance: AMANTADINE
  15. CALTRATE+D [Concomitant]
  16. VOLTAREN [Concomitant]
     Active Substance: DICLOFENAC SODIUM

REACTIONS (1)
  - Urticaria [Unknown]
